FAERS Safety Report 5358146-X (Version None)
Quarter: 2007Q2

REPORT INFORMATION
  Report Type: 
  Country: None (occurrence: None)
  Receive Date: 20070530
  Receipt Date: 20070104
  Transmission Date: 20071010
  Serious: Yes (Other)
  Sender: FDA-Public Use
  Company Number: US200605006007

PATIENT
  Age: 26 Year
  Sex: Male

DRUGS (9)
  1. ZYPREXA [Suspect]
     Dates: start: 20020101
  2. PROZAC [Concomitant]
  3. WELLBUTRIN [Concomitant]
  4. ARIPIPRAZOLE [Concomitant]
  5. QUETIAPINE FUMARATE [Concomitant]
  6. ZIPRASIDONE HCL [Concomitant]
  7. PAROXETINE [Concomitant]
  8. SERTRALINE [Concomitant]
  9. VENLAFAXINE HCL [Concomitant]

REACTIONS (5)
  - ANXIETY [None]
  - CONVULSION [None]
  - DIABETES MELLITUS [None]
  - PANIC DISORDER [None]
  - WEIGHT INCREASED [None]
